FAERS Safety Report 25761797 (Version 2)
Quarter: 2025Q3

REPORT INFORMATION
  Report Type: Spontaneous
  Country: US (occurrence: US)
  Receive Date: 20250904
  Receipt Date: 20250917
  Transmission Date: 20251021
  Serious: No
  Sender: PFIZER
  Company Number: US-PFIZER INC-202500174512

PATIENT
  Age: 78 Year
  Sex: Female
  Weight: 72.109 kg

DRUGS (9)
  1. EUCRISA [Suspect]
     Active Substance: CRISABOROLE
     Indication: Pruritus
     Dosage: APPLIED TO SKIN, MAINLY ABDOMEN (60G TUBE), 2X/DAY
     Route: 061
     Dates: start: 20250821, end: 20250901
  2. EUCRISA [Suspect]
     Active Substance: CRISABOROLE
     Indication: Eczema
  3. UREA [Concomitant]
     Active Substance: UREA
     Route: 061
  4. LUMIGAN [Concomitant]
     Active Substance: BIMATOPROST
     Indication: Glaucoma
     Dosage: 7.5 MG, 1X/DAY IN THE EVENING
     Route: 047
  5. VITAMIN D3 [Concomitant]
     Active Substance: CHOLECALCIFEROL
     Indication: Vitamin D deficiency
     Dosage: 1000 IU, DAILY
  6. VIT K3 [Concomitant]
     Indication: Vitamin D deficiency
     Dosage: 45 UG, DAILY
  7. MENAQUINONE 5 [Concomitant]
     Active Substance: MENAQUINONE 5
  8. HYDROXO B12 [Concomitant]
     Dosage: 2000 UG, DAILY
  9. MAG [MAGNESIUM CHLORIDE] [Concomitant]
     Dosage: 144 MG, DAILY

REACTIONS (2)
  - Constipation [Not Recovered/Not Resolved]
  - Depressed mood [Not Recovered/Not Resolved]

NARRATIVE: CASE EVENT DATE: 20250801
